FAERS Safety Report 17029611 (Version 1)
Quarter: 2019Q4

REPORT INFORMATION
  Report Type: Spontaneous
  Country: US (occurrence: US)
  Receive Date: 20191114
  Receipt Date: 20191114
  Transmission Date: 20200122
  Serious: Yes (Other)
  Sender: FDA-Public Use
  Company Number: US-GLAXOSMITHKLINE-US2019AMR200036

PATIENT
  Sex: Female

DRUGS (5)
  1. PLAQUENIL [Concomitant]
     Active Substance: HYDROXYCHLOROQUINE SULFATE
  2. BENLYSTA [Suspect]
     Active Substance: BELIMUMAB
     Indication: SYSTEMIC LUPUS ERYTHEMATOSUS
     Dosage: UNK
     Route: 042
  3. BENLYSTA [Suspect]
     Active Substance: BELIMUMAB
     Indication: SYSTEMIC LUPUS ERYTHEMATOSUS
     Dosage: UNK UNK, CYC, EVERY 28 DAYS
     Route: 042
     Dates: start: 2013, end: 2015
  4. BENLYSTA [Suspect]
     Active Substance: BELIMUMAB
     Dosage: UNK UNK, CYC, EVERY 28 DAYS
     Route: 042
     Dates: start: 2017
  5. METHOTREXATE. [Concomitant]
     Active Substance: METHOTREXATE

REACTIONS (18)
  - Encephalitis [Unknown]
  - Hypoaesthesia [Unknown]
  - Fibromyalgia [Unknown]
  - Headache [Unknown]
  - Amnesia [Unknown]
  - Memory impairment [Unknown]
  - Asthenia [Unknown]
  - Central nervous system lupus [Unknown]
  - Fatigue [Unknown]
  - Back disorder [Unknown]
  - Pneumonia [Unknown]
  - Loss of personal independence in daily activities [Unknown]
  - Disability [Unknown]
  - Drug ineffective [Unknown]
  - Pain [Unknown]
  - Bronchitis [Unknown]
  - Hemiplegic migraine [Unknown]
  - Dysarthria [Unknown]

NARRATIVE: CASE EVENT DATE: 201710
